FAERS Safety Report 7451878-9 (Version None)
Quarter: 2011Q2

REPORT INFORMATION
  Report Type: 
  Country: None (occurrence: None)
  Receive Date: 20110425
  Receipt Date: 20110411
  Transmission Date: 20111010
  Serious: Yes (Hospitalization)
  Sender: FDA-Public Use
  Company Number: 030995

PATIENT
  Sex: Female
  Weight: 59 kg

DRUGS (3)
  1. LACOSAMIDE [Suspect]
     Indication: EPILEPSY
     Dosage: (450 MG, 100-50-0-300 ORAL)
     Route: 048
     Dates: start: 20090922
  2. APYDAN /00596701/ [Concomitant]
  3. KEPPRA [Concomitant]

REACTIONS (2)
  - CONDITION AGGRAVATED [None]
  - CONVULSION [None]
